FAERS Safety Report 8820088 (Version 1)
Quarter: 2012Q4

REPORT INFORMATION
  Report Type: 
  Country: US (occurrence: US)
  Receive Date: 20121001
  Receipt Date: 20121001
  Transmission Date: 20130627
  Serious: No
  Sender: FDA-Public Use
  Company Number: US-009507513-1208USA010028

PATIENT
  Age: 65 Year
  Sex: Female
  Weight: 89.34 kg

DRUGS (18)
  1. ZETIA [Suspect]
     Indication: BLOOD CHOLESTEROL
     Dosage: 10 mg, qd
     Route: 048
     Dates: start: 20100527, end: 20110114
  2. ZETIA [Suspect]
     Dosage: 10 mg, qd
     Route: 048
  3. LOVASTATIN [Suspect]
     Indication: BLOOD CHOLESTEROL
     Dosage: 40 mg, qd
     Dates: start: 20100219, end: 20110628
  4. OMEGA-3 [Concomitant]
     Dosage: 1000 mg, tid
  5. CALCIUM (UNSPECIFIED) (+) MAGNESIUM (UNSPECIFIED) [Concomitant]
     Dosage: 1200mg/400mg, qd
  6. LECITHIN [Concomitant]
  7. VITAMIN D (UNSPECIFIED) [Concomitant]
  8. VITAMIN E [Concomitant]
  9. VITAMIN B COMPLEX [Concomitant]
  10. UBIDECARENONE [Concomitant]
     Dosage: 100 mg, qd
  11. STRONTIUM CARBONATE [Concomitant]
  12. HYDROXYZINE [Concomitant]
     Dosage: 10 mg, qd
  13. AMITRIPTYLINE HYDROCHLORIDE [Concomitant]
     Dosage: 25 mg, qd
  14. ELMIRON [Concomitant]
     Dosage: 100 mg, bid
  15. METOPROLOL [Concomitant]
     Indication: HYPERTENSION
     Dosage: 25 mg, 1/2 bid
     Dates: start: 20100219, end: 20110114
  16. OXYBUTYNIN [Concomitant]
     Indication: URINARY INCONTINENCE
     Dosage: 2 mg, qd
  17. VOLTAREN EMULGEL [Concomitant]
     Dosage: UNK, prn
     Dates: end: 20110114
  18. METRO GEL (CHLORHEXIDINE GLUCONATE (+) METRONIDAZOLE) [Concomitant]
     Dosage: UNK, bid
     Dates: start: 20110114, end: 20110114

REACTIONS (2)
  - Back pain [Recovered/Resolved]
  - Muscle spasms [Recovered/Resolved]
